FAERS Safety Report 12274320 (Version 1)
Quarter: 2016Q2

REPORT INFORMATION
  Report Type: Spontaneous
  Country: US (occurrence: US)
  Receive Date: 20160415
  Receipt Date: 20160415
  Transmission Date: 20160815
  Serious: No
  Sender: FDA-Public Use
  Company Number: US-ALLERGAN-1510980US

PATIENT
  Sex: Female

DRUGS (1)
  1. LUMIGAN [Suspect]
     Active Substance: BIMATOPROST
     Indication: GLAUCOMA
     Dosage: UNK, EVERY NIGHT BEFORE BED AND IN THE MORNING
     Route: 047
     Dates: start: 201504

REACTIONS (6)
  - Growth of eyelashes [Recovering/Resolving]
  - Ocular hyperaemia [Recovering/Resolving]
  - Visual acuity reduced [Recovering/Resolving]
  - Vision blurred [Recovering/Resolving]
  - Skin hyperpigmentation [Recovering/Resolving]
  - Eye pruritus [Not Recovered/Not Resolved]

NARRATIVE: CASE EVENT DATE: 2015
